FAERS Safety Report 7958830-5 (Version None)
Quarter: 2011Q4

REPORT INFORMATION
  Report Type: 
  Country: None (occurrence: None)
  Receive Date: 20111206
  Receipt Date: 20111124
  Transmission Date: 20120403
  Serious: Yes (Hospitalization, Other)
  Sender: FDA-Public Use
  Company Number: JP-UCBSA-041074

PATIENT
  Age: 59 Year
  Sex: Female

DRUGS (16)
  1. CELECOXIB [Concomitant]
     Indication: RHEUMATOID ARTHRITIS
     Dates: start: 20090518, end: 20101207
  2. WHITE PETROLATUM [Concomitant]
     Dosage: ADEQUATE DOSE
     Dates: start: 20091116
  3. SALMETEROL XINAFOATE FLUTICASONE PROPIONATE [Concomitant]
     Indication: NASOPHARYNGITIS
     Dosage: 1 INHALATION PER USE, 2 PUFF
     Dates: start: 20101129, end: 20110119
  4. SALMETEROL XINAFOATE FLUTICASONE PROPIONATE [Concomitant]
     Dosage: DAILY DOSE: 2 PUFF
     Dates: start: 20110120
  5. HEPARIN [Concomitant]
     Dosage: ADEQUATE DOSE
     Dates: start: 20091116
  6. CELECOXIB [Concomitant]
     Dates: start: 20101209, end: 20110816
  7. CELECOXIB [Concomitant]
     Dates: start: 20110817
  8. AMLODIPINE BESYLATE [Concomitant]
     Indication: HYPERTENSION
     Dates: start: 20101110, end: 20110330
  9. KETOPROFEN [Concomitant]
     Indication: RHEUMATOID ARTHRITIS
     Dosage: ADEQUATE DOSE
     Dates: start: 20101110
  10. SALMETEROL XINAFOATE FLUTICASONE PROPIONATE [Concomitant]
     Indication: ASTHMA
     Dosage: 1 INHALATION PER USE, 2 PUFF
     Dates: start: 20101129, end: 20110119
  11. AMLODIPINE BESYLATE [Concomitant]
     Dates: start: 20110331
  12. SALMETEROL XINAFOATE FLUTICASONE PROPIONATE [Concomitant]
     Dosage: DAILY DOSE: 2 PUFF
     Dates: start: 20110120
  13. PREDNISOLONE FARNESYLATE [Concomitant]
     Dosage: ADEQUATE DOSE
     Dates: start: 20110405
  14. FAMOTIDINE [Concomitant]
     Dates: start: 20101209
  15. CLOBETASOL PROPIONATE [Concomitant]
     Dosage: ADEQUATE DOSE
     Dates: start: 20100402
  16. CERTOLIZUMAB PEGOL [Suspect]
     Indication: RHEUMATOID ARTHRITIS
     Dosage: STARTED ON 13-OCT-2009 AT 200 MG/ 2 WEEKS
     Route: 058
     Dates: start: 20110105, end: 20110817

REACTIONS (1)
  - BREAST CANCER [None]
